FAERS Safety Report 21756046 (Version 1)
Quarter: 2022Q4

REPORT INFORMATION
  Report Type: Spontaneous
  Country: SE (occurrence: SE)
  Receive Date: 20221220
  Receipt Date: 20221220
  Transmission Date: 20230112
  Serious: Yes (Hospitalization, Disabling, Other)
  Sender: FDA-Public Use
  Company Number: SE-Rivopharm Ltd.-000238

PATIENT
  Sex: Female

DRUGS (6)
  1. OLANZAPINE [Suspect]
     Active Substance: OLANZAPINE
     Indication: Product used for unknown indication
     Dosage: 15 MG, DOSE LOWERED FROM 15 MG TO 10 MG
     Route: 065
     Dates: end: 202111
  2. VALPROIC ACID [Interacting]
     Active Substance: VALPROIC ACID
     Indication: Bipolar disorder
     Dosage: 1200 MG, DOSE INC FROM 1200 MG TO 1500 MG MAR 2022
     Route: 065
     Dates: start: 2011
  3. VALPROIC ACID [Interacting]
     Active Substance: VALPROIC ACID
     Indication: Bipolar disorder
     Dosage: 1200 MG DOSE INC FROM 1200 MG TO 1500 MG IN MAR 22
     Route: 065
     Dates: start: 2011
  4. PFIZER-BIONTECH COVID-19 VACCINE [Suspect]
     Active Substance: TOZINAMERAN
     Indication: Product used for unknown indication
     Dosage: UNK
     Route: 065
  5. CLOZAPINE [Interacting]
     Active Substance: CLOZAPINE
     Indication: Psychotic disorder
     Dosage: 400 MG, FROM APRIL 2022 LOWERING THE DOSE BY 12.5
     Route: 065
     Dates: start: 2007
  6. LITHIUM SULFATE [Suspect]
     Active Substance: LITHIUM SULFATE
     Indication: Product used for unknown indication
     Dosage: UNK, VALUE 0.6/ 3 PCS
     Route: 065

REACTIONS (3)
  - Petit mal epilepsy [Unknown]
  - Seizure [Unknown]
  - Drug interaction [Unknown]

NARRATIVE: CASE EVENT DATE: 20210301
